FAERS Safety Report 10203951 (Version 1)
Quarter: 2014Q2

REPORT INFORMATION
  Report Type: Spontaneous
  Country: US (occurrence: None)
  Receive Date: 20140523
  Receipt Date: 20140523
  Transmission Date: 20141212
  Serious: Yes (Hospitalization)
  Sender: FDA-Public Use
  Company Number: UNT-2014-000418

PATIENT
  Age: 72 Year
  Sex: Female
  Weight: 74.4 kg

DRUGS (2)
  1. REMODULIN [Suspect]
     Indication: PULMONARY ARTERIAL HYPERTENSION
     Dosage: 0.094 UG/KG/MIN, CONTINUING, IV DRIP?
     Route: 041
     Dates: start: 20130220
  2. ADCIRCA (TADALAFIL) [Concomitant]

REACTIONS (2)
  - Device leakage [None]
  - Drug dose omission [None]
